FAERS Safety Report 7945648-2 (Version None)
Quarter: 2011Q4

REPORT INFORMATION
  Report Type: 
  Country: None (occurrence: None)
  Receive Date: 20111129
  Receipt Date: 20111121
  Transmission Date: 20120403
  Serious: Yes (Death)
  Sender: FDA-Public Use
  Company Number: US-CELGENEUS-163-21880-11073010

PATIENT
  Sex: Male

DRUGS (9)
  1. NAVELBINE [Concomitant]
     Route: 065
     Dates: start: 20101001, end: 20110701
  2. DOXIL [Concomitant]
     Route: 065
     Dates: start: 20101001, end: 20110701
  3. RITUXAN [Concomitant]
     Route: 065
     Dates: start: 20101001, end: 20110701
  4. POTASSIUM CHLORIDE [Concomitant]
     Dosage: 20 MILLIEQUIVALENTS
     Route: 048
     Dates: start: 20101001, end: 20110701
  5. GEMZAR [Concomitant]
     Route: 065
     Dates: start: 20101001, end: 20110701
  6. CYTOXAN [Concomitant]
     Route: 065
     Dates: start: 20101001, end: 20110701
  7. REVLIMID [Suspect]
     Indication: NON-HODGKIN'S LYMPHOMA
     Dosage: 25 MILLIGRAM
     Route: 048
     Dates: start: 20110531, end: 20110716
  8. VINCRISTINE [Concomitant]
     Route: 065
     Dates: start: 20101001, end: 20110701
  9. FUROSEMIDE [Concomitant]
     Dosage: 40 MILLIGRAM
     Route: 048
     Dates: start: 20101001, end: 20110701

REACTIONS (1)
  - NON-HODGKIN'S LYMPHOMA [None]
